FAERS Safety Report 16685198 (Version 2)
Quarter: 2019Q3

REPORT INFORMATION
  Report Type: Spontaneous
  Country: AU (occurrence: AU)
  Receive Date: 20190808
  Receipt Date: 20190808
  Transmission Date: 20191004
  Serious: Yes (Other)
  Sender: FDA-Public Use
  Company Number: PHHY2019AU181736

PATIENT
  Age: 46 Year
  Sex: Female

DRUGS (4)
  1. NATAMYCIN [Suspect]
     Active Substance: NATAMYCIN
     Indication: EXSEROHILUM INFECTION
     Dosage: UNK
     Route: 065
  2. VORICONAZOLE. [Suspect]
     Active Substance: VORICONAZOLE
     Indication: PRODUCT USED FOR UNKNOWN INDICATION
     Dosage: HOURLY
     Route: 061
  3. VALACICLOVIR [Suspect]
     Active Substance: VALACYCLOVIR HYDROCHLORIDE
     Indication: PRODUCT USED FOR UNKNOWN INDICATION
     Dosage: UNK
     Route: 048
  4. CIPROFLOXACIN. [Suspect]
     Active Substance: CIPROFLOXACIN
     Indication: PRODUCT USED FOR UNKNOWN INDICATION
     Dosage: HOURLY
     Route: 061

REACTIONS (3)
  - Visual acuity reduced [Unknown]
  - Condition aggravated [Unknown]
  - Exserohilum infection [Unknown]
